FAERS Safety Report 5844214-2 (Version None)
Quarter: 2008Q3

REPORT INFORMATION
  Report Type: 
  Country: None (occurrence: None)
  Receive Date: 20080813
  Receipt Date: 20080801
  Transmission Date: 20090109
  Serious: Yes (Other)
  Sender: FDA-Public Use
  Company Number: US-PFIZER INC-2008057396

PATIENT
  Sex: Female
  Weight: 61.7 kg

DRUGS (4)
  1. CHANTIX [Suspect]
     Indication: NICOTINE DEPENDENCE
  2. EFFEXOR [Concomitant]
  3. HYDROCHLOROTHIAZIDE [Concomitant]
  4. VITAMIN B-12 [Concomitant]
     Route: 030

REACTIONS (5)
  - ANGER [None]
  - CRYING [None]
  - HOMICIDAL IDEATION [None]
  - MOOD SWINGS [None]
  - WRONG TECHNIQUE IN DRUG USAGE PROCESS [None]
